FAERS Safety Report 17363228 (Version 1)
Quarter: 2020Q1

REPORT INFORMATION
  Report Type: Report from Study
  Country: US (occurrence: US)
  Receive Date: 20200203
  Receipt Date: 20200203
  Transmission Date: 20200409
  Serious: Yes (Other)
  Sender: FDA-Public Use
  Company Number: US-THERAPEUTICSMD-2020TMD00247

PATIENT
  Sex: Female
  Weight: 86.17 kg

DRUGS (5)
  1. UNSPECIFIED MEDICATION FOR INDIGESTION [Concomitant]
  2. UNSPECIFIED OTHER VITAMINS [Concomitant]
  3. IMVEXXY [Suspect]
     Active Substance: ESTRADIOL
     Indication: INCONTINENCE
     Dosage: 10 ?G, 2X/WEEK, BEFORE BED
     Route: 067
     Dates: end: 202001
  4. UNSPECIFIED STATIN [Concomitant]
  5. UNSPECIFIED MEDICATION FOR THYROID [Concomitant]

REACTIONS (3)
  - Blood pressure increased [Not Recovered/Not Resolved]
  - Ovarian mass [Not Recovered/Not Resolved]
  - Off label use [Recovered/Resolved]
